FAERS Safety Report 7201419-6 (Version None)
Quarter: 2010Q4

REPORT INFORMATION
  Report Type: 
  Country: None (occurrence: None)
  Receive Date: 20101215
  Receipt Date: 20101201
  Transmission Date: 20110411
  Serious: Yes (Death, Other)
  Sender: FDA-Public Use
  Company Number: 2010005307

PATIENT
  Age: 64 Year
  Sex: Male
  Weight: 49 kg

DRUGS (4)
  1. ERLOTINIB HYDROCHLORIDE [Suspect]
     Indication: LUNG ADENOCARCINOMA
     Dosage: (150 MG,150 QD),ORAL
     Route: 048
     Dates: start: 20090421, end: 20090505
  2. ZOLPIDEM TARTRATE [Concomitant]
  3. SODIUM BICARBONATE [Concomitant]
  4. ROHYPNOL (FLUNITRAZEPAM) [Concomitant]

REACTIONS (5)
  - DIARRHOEA [None]
  - LUNG ADENOCARCINOMA [None]
  - MALIGNANT NEOPLASM PROGRESSION [None]
  - METASTASES TO CENTRAL NERVOUS SYSTEM [None]
  - RASH [None]
